FAERS Safety Report 11446604 (Version 1)
Quarter: 2015Q3

REPORT INFORMATION
  Report Type: Spontaneous
  Country: US (occurrence: US)
  Receive Date: 20150831
  Receipt Date: 20150831
  Transmission Date: 20151125
  Serious: No
  Sender: FDA-Public Use
  Company Number: US-ELI_LILLY_AND_COMPANY-US200809001265

PATIENT
  Age: 55 Year
  Sex: Female

DRUGS (1)
  1. CYMBALTA [Suspect]
     Active Substance: DULOXETINE HYDROCHLORIDE

REACTIONS (6)
  - Fluid retention [Unknown]
  - Weight increased [Unknown]
  - Hyperhidrosis [Unknown]
  - Abdominal distension [Unknown]
  - Withdrawal syndrome [Unknown]
  - Night sweats [Unknown]
